FAERS Safety Report 7171635-0 (Version None)
Quarter: 2010Q4

REPORT INFORMATION
  Report Type: 
  Country: None (occurrence: None)
  Receive Date: 20101217
  Receipt Date: 20100203
  Transmission Date: 20110411
  Serious: No
  Sender: FDA-Public Use
  Company Number: US-AMGEN-KDL390505

PATIENT

DRUGS (3)
  1. ENBREL [Suspect]
     Indication: RHEUMATOID ARTHRITIS
     Dosage: 50 MG, QWK
     Route: 058
     Dates: start: 20020401
  2. HYDROXYCHLOROQUINE [Concomitant]
     Dosage: 200 MG, BID
     Route: 048
     Dates: start: 20091211
  3. FENTANYL [Concomitant]

REACTIONS (10)
  - ANIMAL BITE [None]
  - ANIMAL SCRATCH [None]
  - ARTHRALGIA [None]
  - BACTERIAL INFECTION [None]
  - CONFUSIONAL STATE [None]
  - FALL [None]
  - IMPAIRED HEALING [None]
  - JOINT DESTRUCTION [None]
  - JOINT SWELLING [None]
  - WEIGHT BEARING DIFFICULTY [None]
